FAERS Safety Report 24376615 (Version 3)
Quarter: 2024Q4

REPORT INFORMATION
  Report Type: Spontaneous
  Country: BR (occurrence: BR)
  Receive Date: 20240930
  Receipt Date: 20241016
  Transmission Date: 20250115
  Serious: No
  Sender: ELI LILLY AND COMPANY
  Company Number: BR-ELI_LILLY_AND_COMPANY-BR202409007921

PATIENT
  Sex: Female

DRUGS (4)
  1. HUMULIN N [Suspect]
     Active Substance: INSULIN HUMAN
     Indication: Product used for unknown indication
     Dosage: 5 INTERNATIONAL UNIT, EACH MORNING
     Route: 065
     Dates: start: 2023
  2. HUMULIN N [Suspect]
     Active Substance: INSULIN HUMAN
     Dosage: 10 INTERNATIONAL UNIT, DAILY (LUNCH)
     Route: 065
     Dates: start: 2022
  3. HUMULIN N [Suspect]
     Active Substance: INSULIN HUMAN
     Dosage: 5 INTERNATIONAL UNIT, DAILY (NIGHT)
     Route: 065
     Dates: start: 2022
  4. HUMULIN N [Suspect]
     Active Substance: INSULIN HUMAN
     Indication: Product used for unknown indication
     Dosage: UNK UNK, UNKNOWN
     Route: 065
     Dates: start: 2023

REACTIONS (3)
  - Pollakiuria [Unknown]
  - Hypoglycaemia [Unknown]
  - Swelling [Recovered/Resolved]
